FAERS Safety Report 12589732 (Version 1)
Quarter: 2016Q3

REPORT INFORMATION
  Report Type: Spontaneous
  Country: US (occurrence: US)
  Receive Date: 20160725
  Receipt Date: 20160725
  Transmission Date: 20161109
  Serious: No
  Sender: FDA-Public Use
  Company Number: US-ASTRAZENECA-2016SE57830

PATIENT
  Age: 79 Year
  Sex: Female
  Weight: 71.7 kg

DRUGS (4)
  1. SYMBICORT [Suspect]
     Active Substance: BUDESONIDE\FORMOTEROL FUMARATE DIHYDRATE
     Indication: BRONCHIECTASIS
     Dosage: UNKNOWN
     Route: 055
     Dates: start: 2016
  2. ATROVENT [Concomitant]
     Active Substance: IPRATROPIUM BROMIDE
     Dosage: EVERY 4 HOURS DURING THE DAY
     Route: 055
  3. SYMBICORT [Suspect]
     Active Substance: BUDESONIDE\FORMOTEROL FUMARATE DIHYDRATE
     Indication: BRONCHIECTASIS
     Dosage: 160/4.5 UG, UNKNOWN DOSE AND FREQUENCY UNKNOWN
     Route: 055
     Dates: end: 2015
  4. SYMBICORT [Suspect]
     Active Substance: BUDESONIDE\FORMOTEROL FUMARATE DIHYDRATE
     Indication: BRONCHIECTASIS
     Dosage: 80/4.5 UG, TWO PUFFS TWO TIMES A DAY UNKNOWN
     Route: 055
     Dates: start: 2015, end: 2015

REACTIONS (5)
  - Wheezing [Unknown]
  - Weight decreased [Unknown]
  - Muscle spasms [Unknown]
  - Pneumonia [Recovering/Resolving]
  - Lung disorder [Unknown]

NARRATIVE: CASE EVENT DATE: 2015
